FAERS Safety Report 10549552 (Version 2)
Quarter: 2014Q4

REPORT INFORMATION
  Report Type: Spontaneous
  Country: US (occurrence: None)
  Receive Date: 20141020
  Receipt Date: 20141126
  Transmission Date: 20150529
  Serious: Yes (Other)
  Sender: FDA-Public Use
  Company Number: AEGR000671

PATIENT
  Age: 71 Year
  Sex: Female
  Weight: 83.9 kg

DRUGS (14)
  1. CALCITRIOL. [Concomitant]
     Active Substance: CALCITRIOL
  2. FLONASE [Concomitant]
     Active Substance: FLUTICASONE PROPIONATE
  3. LASIX [Concomitant]
     Active Substance: FUROSEMIDE
  4. VITAMIN E [Concomitant]
     Active Substance: .ALPHA.-TOCOPHEROL
  5. AMBIEN [Concomitant]
     Active Substance: ZOLPIDEM TARTRATE
  6. COLCRYS [Concomitant]
     Active Substance: COLCHICINE
  7. PREDNISONE. [Concomitant]
     Active Substance: PREDNISONE
  8. HYDROCODONE/APAP (HYDROCODONE BITARTRATE, PARACETAMOL) [Concomitant]
  9. PROCARDIA [Concomitant]
     Active Substance: NIFEDIPINE
  10. ZOLPIDEM [Concomitant]
     Active Substance: ZOLPIDEM\ZOLPIDEM TARTRATE
  11. JUXTAPID [Suspect]
     Active Substance: LOMITAPIDE MESYLATE
     Indication: TYPE IIA HYPERLIPIDAEMIA
     Route: 048
     Dates: start: 20140729, end: 20141113
  12. COREG [Concomitant]
     Active Substance: CARVEDILOL
  13. MICARDIS [Concomitant]
     Active Substance: TELMISARTAN
  14. OMEGA 3-6-9 (FISH OIL, TOCOPHEROL) [Concomitant]

REACTIONS (6)
  - Diverticulitis [None]
  - Pain in extremity [None]
  - Peripheral swelling [None]
  - Diarrhoea [None]
  - Gait disturbance [None]
  - Abdominal pain [None]

NARRATIVE: CASE EVENT DATE: 20140812
